FAERS Safety Report 4378646-9 (Version None)
Quarter: 2004Q2

REPORT INFORMATION
  Report Type: 
  Country: None (occurrence: None)
  Receive Date: 20040609
  Receipt Date: 20040504
  Transmission Date: 20050107
  Serious: Yes (Death)
  Sender: FDA-Public Use
  Company Number: FRWYE740804MAY04

PATIENT
  Age: 73 Year
  Sex: Male

DRUGS (5)
  1. LORAZEPAM [Suspect]
     Dosage: 2.5 MG 1X PER 1 DAY, ORAL; SEVERAL YEARS
     Route: 048
     Dates: end: 20040202
  2. MOTILIUM [Suspect]
     Dosage: 30 MG 1X PER 1 DAY, ORAL
     Route: 048
  3. PARKINANE (TRIHEXYPHENIDYL, TABLET, 0) [Suspect]
     Dosage: 5 MG 1X PER 1 DAY, ORAL; SEVERAL YEARS
     Route: 048
     Dates: end: 20040126
  4. RYTHMOL [Suspect]
     Dosage: 300 MG 1X PER 1 DAY, ORAL
     Route: 048
  5. ZYPREXA [Suspect]
     Indication: PSYCHOTIC DISORDER
     Dosage: 10 MG 1X PER 1 DAY, ORAL
     Route: 048
     Dates: start: 20031204, end: 20040202

REACTIONS (2)
  - AGITATION [None]
  - CATATONIA [None]
